FAERS Safety Report 6315424-5 (Version None)
Quarter: 2009Q3

REPORT INFORMATION
  Report Type: 
  Country: None (occurrence: None)
  Receive Date: 20090819
  Receipt Date: 20090806
  Transmission Date: 20100115
  Serious: Yes (Disabling, Other)
  Sender: FDA-Public Use
  Company Number: US-PFIZER INC-2009252397

PATIENT
  Sex: Female

DRUGS (2)
  1. XANAX [Suspect]
     Indication: ANXIETY
  2. XANAX [Suspect]
     Indication: PANIC DISORDER

REACTIONS (4)
  - CEREBROVASCULAR ACCIDENT [None]
  - DRUG INEFFECTIVE [None]
  - HEADACHE [None]
  - PRODUCT SUBSTITUTION ISSUE [None]
